FAERS Safety Report 12660487 (Version 2)
Quarter: 2016Q3

REPORT INFORMATION
  Report Type: Spontaneous
  Country: NL (occurrence: NL)
  Receive Date: 20160817
  Receipt Date: 20160825
  Transmission Date: 20161109
  Serious: Yes (Hospitalization, Other)
  Sender: FDA-Public Use
  Company Number: NL-MYLANLABS-2016M1034350

PATIENT

DRUGS (3)
  1. QUETIAPINE. [Suspect]
     Active Substance: QUETIAPINE
     Indication: PRODUCT USED FOR UNKNOWN INDICATION
     Dosage: 13G
     Route: 048
  2. VALPROIC ACID. [Suspect]
     Active Substance: VALPROIC ACID
     Indication: PRODUCT USED FOR UNKNOWN INDICATION
     Dosage: 45G
     Route: 048
  3. OXAZEPAM. [Suspect]
     Active Substance: OXAZEPAM
     Indication: PRODUCT USED FOR UNKNOWN INDICATION
     Dosage: 1.1G
     Route: 048

REACTIONS (11)
  - Liver disorder [Recovered/Resolved]
  - Overdose [Recovered/Resolved]
  - Haemodynamic instability [Recovered/Resolved]
  - Blood creatine phosphokinase increased [Recovered/Resolved]
  - Toxicity to various agents [Recovered/Resolved]
  - Intentional product misuse [Unknown]
  - Metabolic encephalopathy [Recovered/Resolved]
  - Coma [Recovered/Resolved]
  - Electrocardiogram QT prolonged [Recovered/Resolved]
  - Dyspnoea [Recovered/Resolved]
  - Hyperammonaemia [Recovered/Resolved]
